FAERS Safety Report 10578006 (Version 1)
Quarter: 2014Q4

REPORT INFORMATION
  Report Type: Spontaneous
  Country: DE (occurrence: DE)
  Receive Date: 20141112
  Receipt Date: 20141112
  Transmission Date: 20150529
  Serious: Yes (Other)
  Sender: FDA-Public Use
  Company Number: DE-CIPLA LTD.-2014DE01691

PATIENT

DRUGS (3)
  1. SORAFENIB [Suspect]
     Active Substance: SORAFENIB
     Indication: UTERINE CANCER
     Dosage: 400 MG TWICE DAILY  EVERY 21 DAYS
     Route: 048
  2. GEMCITABINE [Suspect]
     Active Substance: GEMCITABINE\GEMCITABINE HYDROCHLORIDE
     Indication: UTERINE CANCER
     Dosage: 1250 MG/QM ON DAYS 1 AND 8 EVERY 21 DAYS
     Route: 042
  3. CISPLATIN. [Suspect]
     Active Substance: CISPLATIN
     Indication: UTERINE CANCER
     Dosage: CISPLATIN 70 MG/QM I.V. ON DAY EVERY 21 DAYS 2
     Route: 042

REACTIONS (1)
  - Cardiac disorder [Unknown]
